FAERS Safety Report 6895311-4 (Version None)
Quarter: 2010Q3

REPORT INFORMATION
  Report Type: 
  Country: None (occurrence: None)
  Receive Date: 20100802
  Receipt Date: 20100720
  Transmission Date: 20110219
  Serious: Yes (Other)
  Sender: FDA-Public Use
  Company Number: PHHY2010ES46974

PATIENT
  Age: 84 Year
  Sex: Male

DRUGS (6)
  1. AFINITOR [Suspect]
     Indication: RENAL CANCER METASTATIC
     Dosage: 10 MG DAILY
     Route: 048
     Dates: start: 20090812, end: 20100719
  2. GELOCATIL [Concomitant]
     Dosage: 1G EVERY 8 HOURS
  3. VALSARTAN [Concomitant]
     Dosage: 160 MG DAILY
     Route: 048
  4. NORVASC [Concomitant]
     Dosage: 10 MG DAILY
     Route: 048
  5. SECALIP [Concomitant]
  6. SEGURIL [Concomitant]

REACTIONS (2)
  - BLOOD CREATININE INCREASED [None]
  - PROTEINURIA [None]
